FAERS Safety Report 15028105 (Version 1)
Quarter: 2018Q2

REPORT INFORMATION
  Report Type: Spontaneous
  Country: US (occurrence: US)
  Receive Date: 20180619
  Receipt Date: 20180619
  Transmission Date: 20180711
  Serious: No
  Sender: FDA-Public Use
  Company Number: US-TEVA-2018-US-907736

PATIENT
  Age: 42 Year
  Sex: Female

DRUGS (1)
  1. AMPHETAMINE W/DEXTROAMPHETAMINE [Suspect]
     Active Substance: AMPHETAMINE SULFATE\DEXTROAMPHETAMINE
     Route: 065
     Dates: start: 201804

REACTIONS (5)
  - Chest pain [Unknown]
  - Nausea [Unknown]
  - Disorientation [Unknown]
  - Dizziness [Unknown]
  - Product substitution issue [Unknown]

NARRATIVE: CASE EVENT DATE: 201804
